FAERS Safety Report 8218100-7 (Version None)
Quarter: 2012Q1

REPORT INFORMATION
  Report Type: 
  Country: None (occurrence: None)
  Receive Date: 20120305
  Receipt Date: 20111102
  Transmission Date: 20120608
  Serious: No
  Sender: FDA-Public Use
  Company Number: 1000025222

PATIENT
  Age: 70 Year
  Sex: Male

DRUGS (6)
  1. MVI (MVI) (MVI) [Concomitant]
  2. DALIRESP [Suspect]
     Indication: CHRONIC OBSTRUCTIVE PULMONARY DISEASE
     Dosage: 500 MCG (500 MCG,1 IN 1 D),ORAL
     Route: 048
     Dates: start: 20111025, end: 20111031
  3. CALCIUM (CALCIUM) (CALCIUM) [Concomitant]
  4. ASPIRIN [Concomitant]
  5. SPIRIVA (TIOTROPIUM BROMIDE) (TIOTROPIUM BROMIDE) [Concomitant]
  6. SYMBICORT (BUDESONIDE W/FORMOTEROL FUMARATE) (BUDESONIDE W/FORMOTEROL [Concomitant]

REACTIONS (4)
  - PARAESTHESIA [None]
  - DIZZINESS [None]
  - NAUSEA [None]
  - INSOMNIA [None]
